FAERS Safety Report 4360359-0 (Version None)
Quarter: 2004Q2

REPORT INFORMATION
  Report Type: 
  Country: None (occurrence: None)
  Receive Date: 20040514
  Receipt Date: 20040429
  Transmission Date: 20050107
  Serious: Yes (Hospitalization)
  Sender: FDA-Public Use
  Company Number: 2004SE02463

PATIENT
  Age: 65 Year
  Sex: Female

DRUGS (6)
  1. IMDUR [Suspect]
     Indication: ANGINA PECTORIS
     Dosage: 30 MG DAILY PO
     Route: 048
     Dates: start: 20040303, end: 20040312
  2. SELOKEN ZOC [Suspect]
     Indication: ANGINA PECTORIS
     Dosage: 100 MG DAILY PO
     Route: 048
     Dates: start: 20040303, end: 20040312
  3. CARDIZEM [Suspect]
     Indication: ANGINA PECTORIS
     Dosage: 180 MG DAILY PO
     Route: 048
     Dates: start: 20040303, end: 20040312
  4. TROMBYL [Suspect]
     Indication: ANGINA PECTORIS
     Dosage: 75 MG DAILY PO
     Route: 048
     Dates: start: 20040303, end: 20040312
  5. SIMVASTATIN [Suspect]
     Indication: HYPERLIPIDAEMIA
     Dosage: 20 MG DAILY PO
     Route: 048
     Dates: start: 20040303, end: 20040312
  6. NITROMEX [Concomitant]

REACTIONS (6)
  - CHEST PAIN [None]
  - ERYTHEMA MULTIFORME [None]
  - NAUSEA [None]
  - PYREXIA [None]
  - RASH GENERALISED [None]
  - WHITE BLOOD CELL COUNT INCREASED [None]
